FAERS Safety Report 5460032-1 (Version None)
Quarter: 2007Q3

REPORT INFORMATION
  Report Type: 
  Country: None (occurrence: None)
  Receive Date: 20070919
  Receipt Date: 20070509
  Transmission Date: 20080115
  Serious: No
  Sender: FDA-Public Use
  Company Number: US-ASTRAZENECA-2007UW11240

PATIENT
  Age: 23 Year
  Sex: Male

DRUGS (2)
  1. SEROQUEL [Suspect]
  2. GEODON [Suspect]

REACTIONS (2)
  - BLOOD TRIGLYCERIDES INCREASED [None]
  - HEPATIC ENZYME INCREASED [None]
